FAERS Safety Report 18007986 (Version 3)
Quarter: 2020Q3

REPORT INFORMATION
  Report Type: Spontaneous
  Country: US (occurrence: US)
  Receive Date: 20200710
  Receipt Date: 20200731
  Transmission Date: 20201103
  Serious: No
  Sender: FDA-Public Use
  Company Number: US-PFIZER INC-2020263800

PATIENT
  Age: 47 Year
  Sex: Female

DRUGS (2)
  1. IBRANCE [Suspect]
     Active Substance: PALBOCICLIB
     Dosage: UNK
     Dates: start: 20200622
  2. IBRANCE [Suspect]
     Active Substance: PALBOCICLIB
     Dosage: UNK
     Dates: start: 20200629

REACTIONS (6)
  - Nausea [Not Recovered/Not Resolved]
  - Arthralgia [Unknown]
  - Acne [Unknown]
  - Neutrophil count decreased [Unknown]
  - Epistaxis [Unknown]
  - Glossodynia [Recovering/Resolving]

NARRATIVE: CASE EVENT DATE: 20200622
